FAERS Safety Report 8419839-0 (Version None)
Quarter: 2012Q2

REPORT INFORMATION
  Report Type: 
  Country: None (occurrence: None)
  Receive Date: 20120607
  Receipt Date: 20120528
  Transmission Date: 20120825
  Serious: Yes (Life-Threatening, Hospitalization)
  Sender: FDA-Public Use
  Company Number: JP-EISAI INC-E7389-01698-SPO-JP

PATIENT
  Sex: Female
  Weight: 55 kg

DRUGS (7)
  1. HALAVEN [Suspect]
     Indication: METASTASES TO LIVER
  2. KYTRIL [Concomitant]
     Indication: NAUSEA
     Dates: start: 20111019
  3. ASPARA POTASSIUM [Concomitant]
     Route: 048
  4. MAGLAX [Concomitant]
     Route: 048
  5. HALAVEN [Suspect]
     Indication: BREAST CANCER RECURRENT
     Route: 042
     Dates: start: 20111019, end: 20111019
  6. HALAVEN [Suspect]
     Indication: METASTASES TO MUSCLE
  7. HALAVEN [Suspect]
     Indication: METASTASES TO KIDNEY

REACTIONS (6)
  - STOMATITIS [None]
  - PYREXIA [None]
  - LYMPHOPENIA [None]
  - THROMBOCYTOPENIA [None]
  - LEUKOPENIA [None]
  - FEBRILE NEUTROPENIA [None]
